FAERS Safety Report 8504128 (Version 10)
Quarter: 2015Q2

REPORT INFORMATION
  Report Type: Report from Study
  Country: BE (occurrence: BE)
  Receive Date: 20120411
  Receipt Date: 20150522
  Transmission Date: 20150821
  Serious: Yes (Hospitalization)
  Sender: FDA-Public Use
  Company Number: BE-ROCHE-1055345

PATIENT
  Age: 76 Year
  Sex: Male

DRUGS (9)
  1. DOCSIMVASTA [Concomitant]
     Active Substance: SIMVASTATIN
     Route: 065
     Dates: start: 1991
  2. PANTOMED (BELGIUM) [Concomitant]
     Route: 065
     Dates: start: 20111207
  3. ASAFLOW [Concomitant]
     Active Substance: ASPIRIN
     Route: 065
     Dates: start: 1991
  4. EXFORGE [Concomitant]
     Active Substance: AMLODIPINE BESYLATE\VALSARTAN
     Dosage: DOSE 5/160 MG
     Route: 065
     Dates: start: 2002
  5. BRUFEN [Concomitant]
     Active Substance: IBUPROFEN
     Route: 065
     Dates: start: 20120301
  6. VEMURAFENIB [Suspect]
     Active Substance: VEMURAFENIB
     Indication: METASTATIC MALIGNANT MELANOMA
     Dosage: LAST DOSE PRIOR TO SAE: 05/MAR/2012
     Route: 048
     Dates: start: 20110914, end: 20120306
  7. ZOMETA [Concomitant]
     Active Substance: ZOLEDRONIC ACID
     Route: 065
     Dates: start: 20110914
  8. VEMURAFENIB [Suspect]
     Active Substance: VEMURAFENIB
     Route: 048
     Dates: start: 20120309
  9. PERFUSALGAN [Concomitant]
     Active Substance: ACETAMINOPHEN
     Dosage: 1 /PREMEDICATION ZOMETA
     Route: 065
     Dates: start: 20110914

REACTIONS (1)
  - Tachycardia [Recovered/Resolved]

NARRATIVE: CASE EVENT DATE: 20120305
